FAERS Safety Report 11729185 (Version 1)
Quarter: 2015Q4

REPORT INFORMATION
  Report Type: Report from Study
  Country: FR (occurrence: FR)
  Receive Date: 20151112
  Receipt Date: 20151112
  Transmission Date: 20160304
  Serious: Yes (Hospitalization, Other)
  Sender: FDA-Public Use
  Company Number: FR-BRISTOL-MYERS SQUIBB COMPANY-BMS-2015-075014

PATIENT
  Age: 64 Year
  Sex: Female
  Weight: 70 kg

DRUGS (9)
  1. LASILIX                            /00032601/ [Concomitant]
     Active Substance: FUROSEMIDE
     Indication: PRODUCT USED FOR UNKNOWN INDICATION
     Dosage: 1 DF, QD
     Route: 065
  2. LEVOTHYROX [Concomitant]
     Active Substance: LEVOTHYROXINE
     Indication: PRODUCT USED FOR UNKNOWN INDICATION
     Dosage: 75 ?G, QD
     Route: 065
  3. DACLATASVIR DIHYDROCHLORIDE [Suspect]
     Active Substance: DACLATASVIR DIHYDROCHLORIDE
     Indication: CHRONIC HEPATITIS C
     Dosage: 30 MG, QD
     Route: 048
     Dates: start: 20141021, end: 20150329
  4. PROZAC [Concomitant]
     Active Substance: FLUOXETINE HYDROCHLORIDE
     Indication: DEPRESSION
     Dosage: 2 DF, QD
     Route: 048
     Dates: start: 2010
  5. BUPRENORPHINE. [Concomitant]
     Active Substance: BUPRENORPHINE
     Indication: PRODUCT USED FOR UNKNOWN INDICATION
     Dosage: 2 MG, BID
     Route: 065
     Dates: start: 2010
  6. SOFOSBUVIR [Suspect]
     Active Substance: SOFOSBUVIR
     Indication: CHRONIC HEPATITIS C
     Dosage: 400 MG, QD
     Route: 048
     Dates: start: 20141021, end: 20150329
  7. BROMAZEPAM [Concomitant]
     Active Substance: BROMAZEPAM
     Indication: ANXIETY
     Dosage: 2 DF, QD
     Route: 065
     Dates: start: 2010
  8. ESOMEPRAZOLE [Concomitant]
     Active Substance: ESOMEPRAZOLE
     Indication: GASTRIC ULCER
     Dosage: 20 MG, QD
     Route: 065
     Dates: start: 2010
  9. ONBREZ [Concomitant]
     Active Substance: INDACATEROL
     Indication: PRODUCT USED FOR UNKNOWN INDICATION
     Route: 065

REACTIONS (11)
  - Fall [Unknown]
  - Headache [Unknown]
  - Dizziness [Unknown]
  - Lower limb fracture [Unknown]
  - Oedema [Unknown]
  - Rectal haemorrhage [Unknown]
  - Asthenia [Unknown]
  - Erythema [Unknown]
  - Arthralgia [Unknown]
  - Thrombocytopenia [Recovered/Resolved]
  - Tooth extraction [Unknown]

NARRATIVE: CASE EVENT DATE: 20150613
